FAERS Safety Report 17910601 (Version 1)
Quarter: 2020Q2

REPORT INFORMATION
  Report Type: Spontaneous
  Country: US (occurrence: US)
  Receive Date: 20200617
  Receipt Date: 20200617
  Transmission Date: 20200714
  Serious: No
  Sender: FDA-Public Use
  Company Number: None

PATIENT
  Age: 66 Week
  Sex: Female
  Weight: 77.11 kg

DRUGS (2)
  1. STELARA [Suspect]
     Active Substance: USTEKINUMAB
     Indication: PSORIASIS
     Dosage: AT WEEK 0 AND WEEK 4 AS DIRECTED
     Route: 058
     Dates: start: 202003
  2. STELARA [Suspect]
     Active Substance: USTEKINUMAB
     Indication: PSORIATIC ARTHROPATHY
     Dosage: AT WEEK 0 AND WEEK 4 AS DIRECTED
     Route: 058
     Dates: start: 202003

REACTIONS (4)
  - Mobility decreased [None]
  - Therapy non-responder [None]
  - Cerebrovascular accident [None]
  - Skin disorder [None]
